FAERS Safety Report 16330559 (Version 1)
Quarter: 2019Q2

REPORT INFORMATION
  Report Type: Spontaneous
  Country: IT (occurrence: IT)
  Receive Date: 20190520
  Receipt Date: 20190520
  Transmission Date: 20190711
  Serious: Yes (Life-Threatening)
  Sender: FDA-Public Use
  Company Number: IT-SA-2019SA133176

PATIENT
  Age: 75 Year
  Sex: Female

DRUGS (8)
  1. AMLODIPINE [Concomitant]
     Active Substance: AMLODIPINE BESYLATE
     Dosage: 5 MG, UNK
  2. EUTIROX [Concomitant]
     Active Substance: LEVOTHYROXINE SODIUM
     Dosage: UNK
  3. TELMISARTAN AND HYDROCHLOROTHIAZIDE [Concomitant]
     Active Substance: HYDROCHLOROTHIAZIDE\TELMISARTAN
     Dosage: 80 MG, UNK
  4. CACIT [CALCIUM CARBONATE;CITRIC ACID] [Concomitant]
     Active Substance: CALCIUM CARBONATE\CITRIC ACID MONOHYDRATE
     Dosage: UNK
  5. EUTIROX [Concomitant]
     Active Substance: LEVOTHYROXINE SODIUM
     Dosage: UNK
  6. DIBASE [Concomitant]
     Active Substance: CHOLECALCIFEROL
     Dosage: UNK
  7. ENOXAPARIN SODIUM. [Suspect]
     Active Substance: ENOXAPARIN SODIUM
     Indication: ATRIAL FIBRILLATION
     Dosage: 12000 IU, QD
     Route: 058
     Dates: start: 20190220
  8. URBASON [METHYLPREDNISOLONE ACETATE] [Concomitant]
     Dosage: UNK

REACTIONS (3)
  - Intra-abdominal haematoma [Recovered/Resolved]
  - Hydronephrosis [Recovered/Resolved]
  - Arterial rupture [Recovered/Resolved]

NARRATIVE: CASE EVENT DATE: 20190226
